FAERS Safety Report 8981672 (Version 1)
Quarter: 2012Q4

REPORT INFORMATION
  Report Type: 
  Country: US (occurrence: US)
  Receive Date: 20121212
  Receipt Date: 20121212
  Transmission Date: 20130627
  Serious: Yes (Other)
  Sender: FDA-Public Use
  Company Number: US-ASTELLAS-1128704

PATIENT
  Age: 51 Year
  Sex: Male

DRUGS (4)
  1. AVASTIN [Suspect]
     Indication: LUNG NEOPLASM MALIGNANT
     Route: 065
     Dates: end: 20061205
  2. TARCEVA [Suspect]
     Indication: PRODUCT USED FOR UNKNOWN INDICATION
     Route: 065
     Dates: start: 20060601
  3. TAXOTERE [Concomitant]
     Route: 065
  4. UCLA MELANOMA VACCINE [Concomitant]

REACTIONS (4)
  - Diabetes mellitus inadequate control [Unknown]
  - Lymphadenopathy [Unknown]
  - Candidiasis [Unknown]
  - Mucosal inflammation [Unknown]
